FAERS Safety Report 6120899-0 (Version None)
Quarter: 2009Q1

REPORT INFORMATION
  Report Type: 
  Country: None (occurrence: None)
  Receive Date: 20090317
  Receipt Date: 20090310
  Transmission Date: 20090719
  Serious: Yes (Other)
  Sender: FDA-Public Use
  Company Number: FR-AVENTIS-200910966FR

PATIENT
  Age: 55 Year
  Sex: Male

DRUGS (7)
  1. TAXOTERE [Suspect]
     Indication: HYPOPHARYNGEAL NEOPLASM
     Route: 042
     Dates: start: 20090209, end: 20090209
  2. ZOPHREN                            /00955301/ [Concomitant]
     Indication: NAUSEA
     Route: 042
     Dates: start: 20090209, end: 20090209
  3. EMEND [Concomitant]
     Indication: NAUSEA
     Route: 048
     Dates: start: 20090209, end: 20090212
  4. SOLU-MEDROL [Concomitant]
     Indication: PREMEDICATION
     Route: 042
     Dates: start: 20090209, end: 20090212
  5. MOPRAL [Concomitant]
     Indication: DRUG USE FOR UNKNOWN INDICATION
  6. LASIX [Concomitant]
     Indication: DRUG USE FOR UNKNOWN INDICATION
  7. XANAX [Concomitant]
     Indication: DRUG USE FOR UNKNOWN INDICATION

REACTIONS (4)
  - CYANOSIS [None]
  - HYPERHIDROSIS [None]
  - LOSS OF CONSCIOUSNESS [None]
  - PERIPHERAL COLDNESS [None]
